FAERS Safety Report 9586519 (Version 1)
Quarter: 2013Q4

REPORT INFORMATION
  Report Type: Spontaneous
  Country: US (occurrence: None)
  Receive Date: 20131001
  Receipt Date: 20131001
  Transmission Date: 20140711
  Serious: Yes (Hospitalization)
  Sender: FDA-Public Use
  Company Number: UCM201309-000069

PATIENT
  Age: 24 Month
  Sex: Male

DRUGS (1)
  1. LAMOTRIGINE [Suspect]
     Indication: CONVULSION

REACTIONS (6)
  - Toxicity to various agents [None]
  - Agitation [None]
  - Crying [None]
  - Myoclonus [None]
  - Hypotonia [None]
  - Overdose [None]
